FAERS Safety Report 12175278 (Version 1)
Quarter: 2016Q1

REPORT INFORMATION
  Report Type: Spontaneous
  Country: US (occurrence: US)
  Receive Date: 20160314
  Receipt Date: 20160314
  Transmission Date: 20160526
  Serious: No
  Sender: FDA-Public Use
  Company Number: US-BAYER-2016-038307

PATIENT
  Age: 53 Year
  Sex: Female
  Weight: 70.3 kg

DRUGS (3)
  1. VITAMINS NOS [Concomitant]
     Active Substance: VITAMINS
  2. CLARITIN [Suspect]
     Active Substance: LORATADINE
     Indication: MULTIPLE ALLERGIES
     Dosage: 1 DF, QD
     Route: 048
     Dates: start: 20160224
  3. CLARITIN [Suspect]
     Active Substance: LORATADINE
     Indication: VERTIGO
     Dosage: 1 DF, BID
     Route: 048
     Dates: start: 20160224, end: 20160225

REACTIONS (9)
  - Oral pain [Not Recovered/Not Resolved]
  - Product odour abnormal [Not Recovered/Not Resolved]
  - Disturbance in attention [Not Recovered/Not Resolved]
  - Product use issue [None]
  - Dizziness [Not Recovered/Not Resolved]
  - Product use issue [None]
  - Dizziness [None]
  - Somnolence [None]
  - Euphoric mood [Not Recovered/Not Resolved]

NARRATIVE: CASE EVENT DATE: 20160224
